FAERS Safety Report 10036304 (Version 1)
Quarter: 2014Q1

REPORT INFORMATION
  Report Type: Spontaneous
  Country: US (occurrence: None)
  Receive Date: 20140306
  Receipt Date: 20140306
  Transmission Date: 20141002
  Serious: Yes (Hospitalization)
  Sender: FDA-Public Use
  Company Number: 163-21880-13011181

PATIENT
  Age: 53 Year
  Sex: Female
  Weight: 79.83 kg

DRUGS (7)
  1. REVLIMID [Suspect]
     Indication: PLASMA CELL MYELOMA
     Dosage: 5 MG, 21 IN 28 D, PO
     Route: 048
     Dates: start: 201203, end: 20130108
  2. ACYCLOVIR (ACICLOVIR) [Concomitant]
  3. FEXOFENADINE (FEXOFENADINE) [Concomitant]
  4. ASPIRIN (ACETYLSALICYLIC ACID) [Concomitant]
  5. OMEPRAZOLE (OMEPRAZOLE) [Concomitant]
  6. DEXAMETHASONE (DEXAMETHASONE) [Concomitant]
  7. FLUTICASONE (FLUTICASONE) [Concomitant]

REACTIONS (1)
  - Pyrexia [None]
